FAERS Safety Report 6786113-8 (Version None)
Quarter: 2010Q2

REPORT INFORMATION
  Report Type: 
  Country: None (occurrence: None)
  Receive Date: 20100623
  Receipt Date: 20100611
  Transmission Date: 20101027
  Serious: Yes (Hospitalization)
  Sender: FDA-Public Use
  Company Number: FR-CELGENEUS-056-FK228-10061657

PATIENT
  Sex: Female

DRUGS (1)
  1. ROMIDEPSIN [Suspect]
     Indication: PERIPHERAL T-CELL LYMPHOMA UNSPECIFIED
     Route: 051
     Dates: start: 20081009

REACTIONS (3)
  - PERIARTHRITIS [None]
  - PERIPHERAL SENSORY NEUROPATHY [None]
  - TENDON DISORDER [None]
